FAERS Safety Report 8010725-7 (Version None)
Quarter: 2011Q4

REPORT INFORMATION
  Report Type: 
  Country: None (occurrence: None)
  Receive Date: 20111228
  Receipt Date: 20111219
  Transmission Date: 20120403
  Serious: Yes (Hospitalization)
  Sender: FDA-Public Use
  Company Number: US-JNJFOC-20111208655

PATIENT
  Sex: Female
  Weight: 74.39 kg

DRUGS (2)
  1. FOLIC ACID [Concomitant]
     Route: 048
     Dates: start: 20110601
  2. REMICADE [Suspect]
     Indication: RHEUMATOID ARTHRITIS
     Route: 042
     Dates: start: 20110901, end: 20111101

REACTIONS (5)
  - PULMONARY TUBERCULOSIS [None]
  - NIGHT SWEATS [None]
  - PULMONARY FIBROSIS [None]
  - PYREXIA [None]
  - ILL-DEFINED DISORDER [None]
